FAERS Safety Report 7193941 (Version 3)
Quarter: 2015Q3

REPORT INFORMATION
  Report Type: Spontaneous
  Country: GB (occurrence: GB)
  Receive Date: 20091130
  Receipt Date: 20150901
  Transmission Date: 20151125
  Serious: Yes (Hospitalization, Other)
  Sender: FDA-Public Use
  Company Number: GB-BAYER-200940186GPV

PATIENT
  Age: 37 Year
  Sex: Female

DRUGS (1)
  1. MIRENA [Suspect]
     Active Substance: LEVONORGESTREL
     Indication: CONTRACEPTION
     Dosage: 20 ?G (DAILY DOSE), CONT, INTRA-UTERINE
     Route: 015

REACTIONS (6)
  - Pregnancy with contraceptive device [Unknown]
  - Vaginal haemorrhage [Unknown]
  - Retained products of conception [Unknown]
  - Amenorrhoea [Unknown]
  - Abortion spontaneous [Unknown]
  - Abdominal pain [Unknown]
